FAERS Safety Report 6072243-5 (Version None)
Quarter: 2009Q1

REPORT INFORMATION
  Report Type: 
  Country: None (occurrence: None)
  Receive Date: 20090206
  Receipt Date: 20090206
  Transmission Date: 20090719
  Serious: Yes (Other)
  Sender: FDA-Public Use
  Company Number: None

PATIENT
  Age: 7 Year
  Sex: Male
  Weight: 43.0917 kg

DRUGS (2)
  1. SINGULAIR [Suspect]
     Indication: ASTHMA
     Dosage: 1 PILL EACH NIGHT PO
     Route: 048
     Dates: start: 20040101, end: 20090130
  2. SINGULAIR [Suspect]
     Indication: MULTIPLE ALLERGIES
     Dosage: 1 PILL EACH NIGHT PO
     Route: 048
     Dates: start: 20040101, end: 20090130

REACTIONS (1)
  - ABNORMAL BEHAVIOUR [None]
